FAERS Safety Report 5750075-2 (Version None)
Quarter: 2008Q2

REPORT INFORMATION
  Report Type: 
  Country: None (occurrence: None)
  Receive Date: 20080527
  Receipt Date: 20080516
  Transmission Date: 20081010
  Serious: Yes (Life-Threatening, Hospitalization, Other)
  Sender: FDA-Public Use
  Company Number: ES-PFIZER INC-2008017224

PATIENT
  Age: 77 Year
  Sex: Male

DRUGS (4)
  1. DOXAZOSIN MESYLATE [Suspect]
     Route: 048
  2. VERAPAMIL HYDROCHLORIDE [Interacting]
     Route: 048
     Dates: start: 20060101, end: 20060604
  3. OLMESARTAN MEDOXOMIL [Interacting]
     Indication: HYPERTENSION
     Route: 048
  4. COROPRES [Interacting]
     Route: 048
     Dates: start: 20060101, end: 20060604

REACTIONS (4)
  - BRADYCARDIA [None]
  - DRUG INTERACTION [None]
  - HYPOTENSION [None]
  - SHOCK [None]
